FAERS Safety Report 17173057 (Version 1)
Quarter: 2019Q4

REPORT INFORMATION
  Report Type: Spontaneous
  Country: US (occurrence: US)
  Receive Date: 20191218
  Receipt Date: 20191218
  Transmission Date: 20200122
  Serious: No
  Sender: FDA-Public Use
  Company Number: NVSC2019US015428

PATIENT
  Sex: Female
  Weight: 74.83 kg

DRUGS (1)
  1. FEMARA [Suspect]
     Active Substance: LETROZOLE
     Indication: NEOPLASM MALIGNANT
     Dosage: 2.5 MG, QD
     Route: 065
     Dates: start: 20190107

REACTIONS (3)
  - Nausea [Unknown]
  - Feeling abnormal [Unknown]
  - Hypersensitivity [Unknown]
